FAERS Safety Report 16838351 (Version 1)
Quarter: 2019Q3

REPORT INFORMATION
  Report Type: Spontaneous
  Country: US (occurrence: US)
  Receive Date: 20190923
  Receipt Date: 20190923
  Transmission Date: 20191005
  Serious: No
  Sender: FDA-Public Use
  Company Number: US-MYLANLABS-2019M1084855

PATIENT
  Sex: Female
  Weight: 58 kg

DRUGS (1)
  1. MESALAMINE RECTAL SUPPOSITORIES [Suspect]
     Active Substance: MESALAMINE
     Indication: PROCTITIS
     Dosage: UNK
     Route: 054

REACTIONS (3)
  - Condition aggravated [Unknown]
  - Drug ineffective [Unknown]
  - Product quality issue [Unknown]
